FAERS Safety Report 17128739 (Version 1)
Quarter: 2019Q4

REPORT INFORMATION
  Report Type: Spontaneous
  Country: US (occurrence: US)
  Receive Date: 20191115
  Receipt Date: 20191115
  Transmission Date: 20200122
  Serious: Yes (Hospitalization)
  Sender: FDA-Public Use
  Company Number: None

PATIENT
  Sex: Male
  Weight: 14.3 kg

DRUGS (5)
  1. 5-FLUOROURACIL (5-FU) [Suspect]
     Active Substance: FLUOROURACIL
     Route: 048
     Dates: start: 20191009
  2. DOXORUBICIN [Concomitant]
     Active Substance: DOXORUBICIN
     Dates: end: 20191101
  3. VINCRISTINE [Concomitant]
     Active Substance: VINCRISTINE
     Dates: end: 20191107
  4. CISPLATIN. [Suspect]
     Active Substance: CISPLATIN
     Dates: end: 20191031
  5. DEXRAZOXANE. [Concomitant]
     Active Substance: DEXRAZOXANE
     Dates: end: 20191101

REACTIONS (2)
  - Neutrophil count decreased [None]
  - Pyrexia [None]

NARRATIVE: CASE EVENT DATE: 20191109
